FAERS Safety Report 4667986-1 (Version None)
Quarter: 2005Q2

REPORT INFORMATION
  Report Type: 
  Country: None (occurrence: None)
  Receive Date: 20050520
  Receipt Date: 20040415
  Transmission Date: 20051028
  Serious: Yes (Other)
  Sender: FDA-Public Use
  Company Number: GB-AMGEN-US134008

PATIENT
  Age: 60 Year
  Sex: Female

DRUGS (9)
  1. ENBREL [Suspect]
     Indication: RHEUMATOID ARTHRITIS
     Route: 058
     Dates: start: 20030611, end: 20031001
  2. CELEBREX [Suspect]
     Route: 048
     Dates: start: 20020501, end: 20031001
  3. LOSEC [Concomitant]
     Dates: start: 20020401
  4. VERAPAMIL HYDROCHLORIDE [Concomitant]
     Dates: start: 20020510
  5. AMITRIPTYLINE [Concomitant]
     Dates: start: 19991022
  6. URSODEOXYCHOLIC ACID [Concomitant]
     Dates: start: 20000602
  7. CARBOMER [Concomitant]
     Dates: start: 20030401
  8. CO-PROXAMOL [Concomitant]
     Dates: start: 19990101
  9. IRON [Concomitant]
     Dates: start: 19980101

REACTIONS (4)
  - BILIARY CIRRHOSIS PRIMARY [None]
  - CONDITION AGGRAVATED [None]
  - HEPATITIS CHRONIC ACTIVE [None]
  - LIVER FUNCTION TEST ABNORMAL [None]
